FAERS Safety Report 21202923 (Version 2)
Quarter: 2022Q3

REPORT INFORMATION
  Report Type: Spontaneous
  Country: US (occurrence: US)
  Receive Date: 20220811
  Receipt Date: 20220817
  Transmission Date: 20221027
  Serious: No
  Sender: FDA-Public Use
  Company Number: US-OTSUKA-2022_034193

PATIENT

DRUGS (12)
  1. ARIPIPRAZOLE [Suspect]
     Active Substance: ARIPIPRAZOLE
     Indication: Psychotic symptom
     Dosage: UNK
     Route: 065
  2. BREXPIPRAZOLE [Suspect]
     Active Substance: BREXPIPRAZOLE
     Indication: Psychotic symptom
     Dosage: UNK
     Route: 065
  3. ASENAPINE [Concomitant]
     Active Substance: ASENAPINE
     Indication: Psychotic symptom
     Dosage: UNK
     Route: 065
  4. CLOZAPINE [Concomitant]
     Active Substance: CLOZAPINE
     Indication: Psychotic symptom
     Dosage: UNK
     Route: 065
  5. ILOPERIDONE [Concomitant]
     Active Substance: ILOPERIDONE
     Indication: Psychotic symptom
     Dosage: UNK
     Route: 065
  6. LURASIDONE [Concomitant]
     Active Substance: LURASIDONE
     Indication: Psychotic symptom
     Dosage: UNK
     Route: 065
  7. OLANZAPINE [Concomitant]
     Active Substance: OLANZAPINE
     Indication: Psychotic symptom
     Dosage: UNK
     Route: 065
  8. PALIPERIDONE [Concomitant]
     Active Substance: PALIPERIDONE
     Indication: Psychotic symptom
     Dosage: UNK
     Route: 065
  9. PIMAVANSERIN [Concomitant]
     Active Substance: PIMAVANSERIN
     Indication: Psychotic symptom
     Dosage: UNK
     Route: 065
  10. QUETIAPINE [Concomitant]
     Active Substance: QUETIAPINE
     Indication: Psychotic symptom
     Dosage: UNK
     Route: 065
  11. RISPERIDONE [Concomitant]
     Active Substance: RISPERIDONE
     Indication: Psychotic symptom
     Dosage: UNK
     Route: 065
  12. ZIPRASIDONE [Concomitant]
     Active Substance: ZIPRASIDONE
     Indication: Psychotic symptom
     Dosage: UNK
     Route: 065

REACTIONS (1)
  - Product use in unapproved indication [Unknown]
